FAERS Safety Report 7286468-4 (Version None)
Quarter: 2011Q1

REPORT INFORMATION
  Report Type: 
  Country: None (occurrence: None)
  Receive Date: 20110210
  Receipt Date: 20110120
  Transmission Date: 20110831
  Serious: No
  Sender: FDA-Public Use
  Company Number: US-B.I. PHARMACEUTICALS,INC./RIDGEFIELD-2011-BP-02235BP

PATIENT
  Sex: Female

DRUGS (6)
  1. METOPROLOL [Concomitant]
     Indication: HYPERTENSION
     Dosage: 25 MG
     Route: 048
     Dates: start: 20090101
  2. HYDROCHLOROTHIAZDE TAB [Concomitant]
     Indication: HYPERTENSION
     Dosage: 25 MG
     Route: 048
     Dates: start: 19940101
  3. LEVOTHYROXINE SODIUM [Concomitant]
     Indication: THYROID DISORDER
     Dosage: 0.075 MG
     Route: 048
     Dates: start: 19890101
  4. DIGOXIN [Concomitant]
     Dosage: 0.25 MG
     Route: 048
     Dates: start: 19890101
  5. PRADAXA [Suspect]
     Indication: ATRIAL FIBRILLATION
     Dosage: 300 MG
     Route: 048
     Dates: start: 20110117
  6. LISINOPRIL [Concomitant]
     Indication: HYPERTENSION
     Dosage: 40 MG
     Route: 048

REACTIONS (2)
  - PHOTOPSIA [None]
  - PHOTOPHOBIA [None]
